FAERS Safety Report 17080453 (Version 1)
Quarter: 2019Q4

REPORT INFORMATION
  Report Type: Spontaneous
  Country: US (occurrence: US)
  Receive Date: 20191029
  Receipt Date: 20191029
  Transmission Date: 20200122
  Serious: Yes (Life-Threatening, Hospitalization, Disabling, Other)
  Sender: FDA-Public Use
  Company Number: None

PATIENT
  Age: 64 Year
  Sex: Female

DRUGS (1)
  1. ORENCIA [Suspect]
     Active Substance: ABATACEPT
     Indication: RHEUMATOID ARTHRITIS
     Route: 048
     Dates: start: 201908, end: 201909

REACTIONS (8)
  - Meningitis [None]
  - Coma [None]
  - Vomiting [None]
  - Blood count abnormal [None]
  - Eye disorder [None]
  - Dizziness [None]
  - Loss of consciousness [None]
  - Transient ischaemic attack [None]

NARRATIVE: CASE EVENT DATE: 20191029
